FAERS Safety Report 12477335 (Version 1)
Quarter: 2016Q2

REPORT INFORMATION
  Report Type: Report from Study
  Country: AU (occurrence: AU)
  Receive Date: 20160617
  Receipt Date: 20160617
  Transmission Date: 20160815
  Serious: Yes (Death, Hospitalization)
  Sender: FDA-Public Use
  Company Number: AU-ASTRAZENECA-2012SE94358

PATIENT
  Age: 70 Year
  Sex: Female

DRUGS (1)
  1. ARIMIDEX [Suspect]
     Active Substance: ANASTROZOLE
     Route: 048
     Dates: start: 20111001

REACTIONS (10)
  - Ocular neoplasm [Not Recovered/Not Resolved]
  - Lymphoedema [Unknown]
  - Depressed mood [Unknown]
  - Psychiatric symptom [Unknown]
  - Arthralgia [Unknown]
  - Joint stiffness [Not Recovered/Not Resolved]
  - Impaired driving ability [Unknown]
  - Death [Fatal]
  - Bone density decreased [Unknown]
  - Fatigue [Not Recovered/Not Resolved]

NARRATIVE: CASE EVENT DATE: 2012
